FAERS Safety Report 14552119 (Version 1)
Quarter: 2018Q1

REPORT INFORMATION
  Report Type: Spontaneous
  Country: US (occurrence: US)
  Receive Date: 20180216
  Receipt Date: 20180216
  Transmission Date: 20180509
  Serious: Yes (Hospitalization)
  Sender: FDA-Public Use
  Company Number: None

PATIENT
  Age: 48 Year
  Sex: Female

DRUGS (16)
  1. METOPROLOL TARTRATE. [Concomitant]
     Active Substance: METOPROLOL TARTRATE
  2. HYDRO/APAP [Concomitant]
     Active Substance: ACETAMINOPHEN\HYDROCODONE
  3. FOLIC ACID. [Concomitant]
     Active Substance: FOLIC ACID
  4. OXYCODONE AND ACETAMINOPHEN [Concomitant]
     Active Substance: ACETAMINOPHEN\OXYCODONE HYDROCHLORIDE
  5. HUMIRA [Suspect]
     Active Substance: ADALIMUMAB
     Indication: RHEUMATOID ARTHRITIS
     Dosage: DATES OF USE JAN 2018 TO HELD/ONGOING
     Route: 058
     Dates: start: 201801
  6. PREDNISONE. [Concomitant]
     Active Substance: PREDNISONE
  7. DOXYCYCL HYC 100 MG GENERIC FOR VIBRA TAB 100 MG [Concomitant]
     Active Substance: DOXYCYCLINE HYCLATE
  8. CEPHALEXIN. [Concomitant]
     Active Substance: CEPHALEXIN
  9. SSD CREAM [Concomitant]
     Active Substance: SILVER SULFADIAZINE
  10. IBUPROFEN. [Concomitant]
     Active Substance: IBUPROFEN
  11. KETOCONAZOLE. [Concomitant]
     Active Substance: KETOCONAZOLE
  12. APAP/CODEIN [Concomitant]
  13. METHOTREXATE. [Concomitant]
     Active Substance: METHOTREXATE
  14. VITAMIN B12 [Concomitant]
     Active Substance: CYANOCOBALAMIN
  15. MORPHINE [Concomitant]
     Active Substance: MORPHINE
  16. OYSCO 500+D [Concomitant]

REACTIONS (1)
  - Accident [None]

NARRATIVE: CASE EVENT DATE: 201802
